FAERS Safety Report 5175623-5 (Version None)
Quarter: 2006Q4

REPORT INFORMATION
  Report Type: 
  Country: None (occurrence: None)
  Receive Date: 20061215
  Receipt Date: 20060718
  Transmission Date: 20070319
  Serious: No
  Sender: FDA-Public Use
  Company Number: US-AMGEN-KDL186783

PATIENT
  Sex: Female

DRUGS (2)
  1. ENBREL [Suspect]
     Indication: PSORIATIC ARTHROPATHY
     Route: 058
     Dates: start: 20060705
  2. ENBREL [Suspect]
     Indication: PSORIASIS

REACTIONS (10)
  - BEDRIDDEN [None]
  - CELLULITIS [None]
  - CONDITION AGGRAVATED [None]
  - DIPLOPIA [None]
  - DYSPHONIA [None]
  - INJECTION SITE REACTION [None]
  - PHARYNGEAL OEDEMA [None]
  - PSORIASIS [None]
  - SWOLLEN TONGUE [None]
  - VISION BLURRED [None]
